FAERS Safety Report 23402689 (Version 2)
Quarter: 2024Q2

REPORT INFORMATION
  Report Type: Spontaneous
  Country: US (occurrence: US)
  Receive Date: 20240115
  Receipt Date: 20240531
  Transmission Date: 20240716
  Serious: No
  Sender: FDA-Public Use
  Company Number: US-Calliditas-2024CAL00045

PATIENT
  Age: 42 Year
  Sex: Male

DRUGS (1)
  1. TARPEYO [Suspect]
     Active Substance: BUDESONIDE
     Indication: IgA nephropathy
     Route: 048
     Dates: start: 20220423

REACTIONS (5)
  - Prescribed underdose [Unknown]
  - Product dose omission issue [Unknown]
  - Muscle spasms [Recovering/Resolving]
  - Irritability [Unknown]
  - Impatience [Unknown]
